FAERS Safety Report 8622515-2 (Version None)
Quarter: 2012Q3

REPORT INFORMATION
  Report Type: 
  Country: None (occurrence: None)
  Receive Date: 20120827
  Receipt Date: 20120820
  Transmission Date: 20120928
  Serious: No
  Sender: FDA-Public Use
  Company Number: US-PFIZER INC-2012204829

PATIENT
  Sex: Female

DRUGS (3)
  1. IBUPROFEN [Concomitant]
     Indication: PAIN
     Dosage: 600 MG, UNK
  2. NORCO [Concomitant]
     Indication: PAIN
     Dosage: UNK
  3. DEPO-PROVERA [Suspect]
     Indication: ENDOMETRIOSIS
     Dosage: UNK
     Route: 030
     Dates: start: 20120820

REACTIONS (3)
  - DYSPNOEA [None]
  - COUGH [None]
  - RASH [None]
